FAERS Safety Report 8447364-X (Version None)
Quarter: 2012Q2

REPORT INFORMATION
  Report Type: 
  Country: None (occurrence: None)
  Receive Date: 20120619
  Receipt Date: 20120613
  Transmission Date: 20120825
  Serious: Yes (Death)
  Sender: FDA-Public Use
  Company Number: JP-BAYER-200914483BYL

PATIENT
  Age: 76 Year
  Sex: Male
  Weight: 51 kg

DRUGS (11)
  1. NEXAVAR [Suspect]
     Indication: HEPATIC NEOPLASM MALIGNANT
     Dosage: 400 MG, BID
     Route: 048
     Dates: start: 20091021, end: 20091101
  2. DECADRON [Suspect]
     Indication: NEOPLASM MALIGNANT
     Dosage: DAILY DOSE 2 MG
     Route: 048
     Dates: start: 20110620, end: 20110808
  3. MUCOSOLVAN [Concomitant]
     Indication: PRODUCTIVE COUGH
     Dosage: DAILY DOSE 45 MG
     Route: 048
     Dates: start: 20101213
  4. NAPROXEN [Concomitant]
     Indication: PYREXIA
     Dosage: DAILY DOSE 100 MG
     Route: 048
     Dates: start: 20110808, end: 20110811
  5. ASPIRIN [Concomitant]
     Indication: CEREBRAL INFARCTION
     Dosage: DAILY DOSE 100 MG
     Route: 048
     Dates: start: 20050414
  6. LANSOPRAZOLE [Concomitant]
     Indication: OESOPHAGITIS
     Dosage: DAILY DOSE 30 MG
     Route: 048
     Dates: start: 20081102
  7. LASIX [Concomitant]
     Indication: ASCITES
     Dosage: DAILY DOSE 20 MG
     Route: 048
     Dates: start: 20070929
  8. LEVOFLOXACIN [Concomitant]
     Indication: PYREXIA
     Dosage: DAILY DOSE 500 MG
     Route: 048
     Dates: start: 20110808, end: 20110811
  9. NEXAVAR [Suspect]
     Dosage: 400 MG (DAILY DOSE), , ORAL
     Route: 048
     Dates: start: 20091109, end: 20110808
  10. URSO 250 [Concomitant]
     Indication: HEPATITIS
     Dosage: DAILY DOSE 100 MG
     Route: 048
     Dates: start: 20010624
  11. TICLOPIDINE HCL [Concomitant]
     Indication: CEREBRAL INFARCTION
     Dosage: DAILY DOSE 100 MG
     Route: 048
     Dates: start: 20050414

REACTIONS (3)
  - HEPATIC NEOPLASM MALIGNANT [None]
  - PALMAR-PLANTAR ERYTHRODYSAESTHESIA SYNDROME [None]
  - PULMONARY TUBERCULOSIS [None]
